FAERS Safety Report 10080664 (Version 1)
Quarter: 2014Q2

REPORT INFORMATION
  Report Type: Spontaneous
  Country: GB (occurrence: GB)
  Receive Date: 20140416
  Receipt Date: 20140416
  Transmission Date: 20141212
  Serious: Yes (Death)
  Sender: FDA-Public Use
  Company Number: GB-ACCORD-023034

PATIENT
  Age: 50 Year
  Sex: Male
  Weight: 110 kg

DRUGS (4)
  1. FLUOROURACIL [Suspect]
     Indication: COLON CANCER METASTATIC
     Dosage: PATIENT ALSO RECEIVED 3RD (22- OCT-2013) ,4TH, 5TH AND 6TH CYCLE.
     Route: 042
     Dates: start: 20130812
  2. IRINOTECAN [Suspect]
     Indication: COLON CANCER METASTATIC
     Route: 042
     Dates: start: 20130812
  3. FOLINIC ACID [Suspect]
     Indication: COLON CANCER METASTATIC
     Route: 042
     Dates: start: 20130812
  4. AFLIBERCEPT [Suspect]
     Indication: COLON CANCER METASTATIC
     Dosage: ON 22-OCT-2013 THE THIRD CYCLE OF AFLIBERCEPT WAS PERFORMED.
     Route: 042
     Dates: start: 20130812

REACTIONS (2)
  - Abdominal pain [Recovered/Resolved]
  - Neoplasm progression [Fatal]
